FAERS Safety Report 15684278 (Version 1)
Quarter: 2018Q4

REPORT INFORMATION
  Report Type: Spontaneous
  Country: US (occurrence: US)
  Receive Date: 20181204
  Receipt Date: 20181204
  Transmission Date: 20190205
  Serious: No
  Sender: FDA-Public Use
  Company Number: US-TEVA-2018-US-981842

PATIENT
  Sex: Female

DRUGS (1)
  1. GRANIX [Suspect]
     Active Substance: TBO-FILGRASTIM
     Indication: CHEMOTHERAPY
     Dosage: 1DF= 300MCG/0.5 ML
     Dates: start: 201808

REACTIONS (2)
  - Device issue [Unknown]
  - Administration site discomfort [Unknown]
